FAERS Safety Report 11460050 (Version 3)
Quarter: 2015Q4

REPORT INFORMATION
  Report Type: Report from Study
  Country: DE (occurrence: DE)
  Receive Date: 20150904
  Receipt Date: 20151104
  Transmission Date: 20160304
  Serious: Yes (Life-Threatening, Hospitalization)
  Sender: FDA-Public Use
  Company Number: DE-ABBVIE-15P-062-1456644-00

PATIENT
  Age: 30 Year
  Sex: Female
  Weight: 84 kg

DRUGS (8)
  1. SALOFALK [Concomitant]
     Active Substance: MESALAMINE
     Indication: PRODUCT USED FOR UNKNOWN INDICATION
  2. AZATHIOPRINE. [Concomitant]
     Active Substance: AZATHIOPRINE
     Indication: PRODUCT USED FOR UNKNOWN INDICATION
  3. HUMIRA [Suspect]
     Active Substance: ADALIMUMAB
     Indication: CROHN^S DISEASE
     Route: 058
     Dates: start: 20150416, end: 20150807
  4. PARACETAMOL [Concomitant]
     Active Substance: ACETAMINOPHEN
     Indication: PRODUCT USED FOR UNKNOWN INDICATION
  5. SALBUTAMOL [Concomitant]
     Active Substance: ALBUTEROL
     Indication: PRODUCT USED FOR UNKNOWN INDICATION
  6. PREDNISOLON [Concomitant]
     Active Substance: PREDNISOLONE
     Indication: PRODUCT USED FOR UNKNOWN INDICATION
     Dosage: SUCCESSIVE REDUCTION
  7. PREDNISOLON [Concomitant]
     Active Substance: PREDNISOLONE
  8. ESPUMISAN [Concomitant]
     Active Substance: DIMETHICONE
     Indication: PRODUCT USED FOR UNKNOWN INDICATION

REACTIONS (15)
  - Bronchopulmonary aspergillosis [Recovering/Resolving]
  - Candida infection [Unknown]
  - Drug eruption [Recovering/Resolving]
  - Urinary tract infection [Recovered/Resolved]
  - General physical health deterioration [Recovering/Resolving]
  - Inflammatory marker increased [Recovering/Resolving]
  - Lung consolidation [Unknown]
  - Lung disorder [Unknown]
  - Pulmonary sepsis [Recovering/Resolving]
  - Cough [Unknown]
  - Chills [Recovering/Resolving]
  - Acute kidney injury [Recovered/Resolved]
  - Fatigue [Unknown]
  - Retroperitoneal lymphadenopathy [Unknown]
  - Pleural effusion [Unknown]

NARRATIVE: CASE EVENT DATE: 2015
